FAERS Safety Report 14761394 (Version 1)
Quarter: 2018Q2

REPORT INFORMATION
  Report Type: Report from Study
  Country: CA (occurrence: CA)
  Receive Date: 20180415
  Receipt Date: 20180415
  Transmission Date: 20180711
  Serious: Yes (Death, Other)
  Sender: FDA-Public Use
  Company Number: PHHY2017CA172800

PATIENT
  Sex: Female

DRUGS (1)
  1. TAFINLAR [Suspect]
     Active Substance: DABRAFENIB MESYLATE
     Indication: NON-SMALL CELL LUNG CANCER
     Dosage: 75 MG, UNK
     Route: 048
     Dates: start: 201403, end: 201409

REACTIONS (5)
  - Rash [Unknown]
  - Uveitis [Unknown]
  - Drug intolerance [Unknown]
  - Hypersensitivity [Unknown]
  - Death [Fatal]
